FAERS Safety Report 7048479-3 (Version None)
Quarter: 2010Q4

REPORT INFORMATION
  Report Type: 
  Country: None (occurrence: None)
  Receive Date: 20101015
  Receipt Date: 20101005
  Transmission Date: 20110411
  Serious: Yes (Other)
  Sender: FDA-Public Use
  Company Number: US-ABBOTT-10P-163-0676049-00

PATIENT
  Age: 56 Year
  Sex: Male
  Weight: 69 kg

DRUGS (7)
  1. VICODIN [Suspect]
     Indication: BACK PAIN
     Route: 048
  2. CHANTIX [Interacting]
     Indication: SMOKING CESSATION THERAPY
     Route: 048
     Dates: start: 20100920
  3. KLONOPIN [Interacting]
     Indication: BACK PAIN
     Route: 048
  4. PRISTIQ [Concomitant]
     Indication: PRODUCT USED FOR UNKNOWN INDICATION
     Dates: start: 20100501
  5. PRISTIQ [Concomitant]
     Dates: start: 20100817
  6. MOBIC [Concomitant]
     Indication: PRODUCT USED FOR UNKNOWN INDICATION
  7. BUSPAR [Concomitant]
     Indication: PRODUCT USED FOR UNKNOWN INDICATION

REACTIONS (5)
  - ANGER [None]
  - DEPRESSION [None]
  - DRUG INTERACTION [None]
  - PAIN [None]
  - SPINAL FRACTURE [None]
